FAERS Safety Report 8295068-9 (Version None)
Quarter: 2012Q2

REPORT INFORMATION
  Report Type: 
  Country: None (occurrence: None)
  Receive Date: 20120416
  Receipt Date: 20120404
  Transmission Date: 20120825
  Serious: Yes (Hospitalization, Other)
  Sender: FDA-Public Use
  Company Number: AUR-APL-2012-01561

PATIENT
  Age: 40 Year
  Sex: Female

DRUGS (2)
  1. CITALOPRAM HYDROBROMIDE [Suspect]
     Indication: DEPRESSION
     Dosage: 80 MG (40 MG, 2 IN 1 D)
  2. OVER-THE-COUNTER HERBAL MEDICATIONS (HERBALIFE PRODUCTS) [Concomitant]

REACTIONS (8)
  - DIZZINESS [None]
  - LOSS OF CONSCIOUSNESS [None]
  - FALL [None]
  - TORSADE DE POINTES [None]
  - LACERATION [None]
  - SYNCOPE [None]
  - PALPITATIONS [None]
  - LONG QT SYNDROME CONGENITAL [None]
